FAERS Safety Report 13465997 (Version 1)
Quarter: 2017Q2

REPORT INFORMATION
  Report Type: Spontaneous
  Country: US (occurrence: US)
  Receive Date: 20170421
  Receipt Date: 20170421
  Transmission Date: 20170830
  Serious: No
  Sender: FDA-Public Use
  Company Number: US-PFIZER INC-2016570806

PATIENT
  Age: 60 Year
  Sex: Female
  Weight: 96.16 kg

DRUGS (1)
  1. CELEBREX [Suspect]
     Active Substance: CELECOXIB
     Indication: RESTLESS LEGS SYNDROME
     Dosage: 200 MG, 1X/DAY
     Route: 048

REACTIONS (2)
  - Hypokinesia [Unknown]
  - Product use in unapproved indication [Unknown]
